FAERS Safety Report 15708956 (Version 11)
Quarter: 2023Q1

REPORT INFORMATION
  Report Type: Report from Study
  Country: CA (occurrence: CA)
  Receive Date: 20181211
  Receipt Date: 20230309
  Transmission Date: 20230418
  Serious: Yes (Hospitalization, Other)
  Sender: FDA-Public Use
  Company Number: PHHY2018CA131110

PATIENT
  Age: 84 Year
  Sex: Male

DRUGS (5)
  1. SANDOSTATIN LAR DEPOT [Suspect]
     Active Substance: OCTREOTIDE ACETATE
     Indication: Carcinoid tumour
     Dosage: 30 MG, Q4W (4 WEEKS)
     Route: 030
     Dates: start: 20180418
  2. SANDOSTATIN LAR DEPOT [Suspect]
     Active Substance: OCTREOTIDE ACETATE
     Dosage: 60 MG, Q4W
     Route: 030
     Dates: start: 20180418
  3. SANDOSTATIN LAR DEPOT [Suspect]
     Active Substance: OCTREOTIDE ACETATE
  4. GALANTAMINE [Concomitant]
     Active Substance: GALANTAMINE
     Indication: Product used for unknown indication
     Dosage: 8 MG, QD (OD)
     Route: 065
  5. GALANTAMINE [Concomitant]
     Active Substance: GALANTAMINE
     Dosage: 8 MG, BID
     Route: 065
     Dates: start: 20210812

REACTIONS (12)
  - Nephrolithiasis [Unknown]
  - Pain [Unknown]
  - Confusional state [Recovering/Resolving]
  - Disorientation [Recovering/Resolving]
  - Carcinoid tumour [Unknown]
  - Malignant neoplasm progression [Unknown]
  - Transient ischaemic attack [Recovered/Resolved]
  - Syncope [Recovered/Resolved]
  - Hepatic lesion [Unknown]
  - Blood pressure systolic increased [Unknown]
  - Erythema [Unknown]
  - Incorrect dose administered [Unknown]

NARRATIVE: CASE EVENT DATE: 20180901
